FAERS Safety Report 15209719 (Version 4)
Quarter: 2018Q4

REPORT INFORMATION
  Report Type: Report from Study
  Country: US (occurrence: US)
  Receive Date: 20180727
  Receipt Date: 20181213
  Transmission Date: 20190204
  Serious: Yes (Hospitalization, Other)
  Sender: FDA-Public Use
  Company Number: PHEH2018US029895

PATIENT
  Sex: Female
  Weight: 72.56 kg

DRUGS (1)
  1. COSENTYX [Suspect]
     Active Substance: SECUKINUMAB
     Indication: PSORIASIS
     Route: 058

REACTIONS (8)
  - Skin infection [Unknown]
  - Fall [Unknown]
  - Psoriatic arthropathy [Unknown]
  - Joint destruction [Unknown]
  - Therapy non-responder [Recovered/Resolved]
  - Malaise [Unknown]
  - Psoriasis [Unknown]
  - Pain [Unknown]

NARRATIVE: CASE EVENT DATE: 2018
